FAERS Safety Report 5095390-3 (Version None)
Quarter: 2006Q3

REPORT INFORMATION
  Report Type: 
  Country: None (occurrence: None)
  Receive Date: 20060901
  Receipt Date: 20060703
  Transmission Date: 20061208
  Serious: Yes (Life-Threatening, Hospitalization)
  Sender: FDA-Public Use
  Company Number: JP-ROCHE-454150

PATIENT
  Age: 62 Year
  Sex: Female
  Weight: 58 kg

DRUGS (5)
  1. PEGASYS [Suspect]
     Route: 058
     Dates: start: 20051006, end: 20060523
  2. PEGASYS [Suspect]
     Route: 058
     Dates: start: 20060530, end: 20060530
  3. CARBENIN [Concomitant]
     Route: 042
     Dates: start: 20060620, end: 20060724
  4. 1 CONCOMITANT DRUG [Concomitant]
     Dosage: IRRADIATED PLATELETS
     Dates: start: 20060120, end: 20060707
  5. 1 CONCOMITANT DRUG [Concomitant]
     Dosage: IRRADIATED RED BLOOD CELL CONCENTRATES
     Dates: start: 20060621, end: 20060704

REACTIONS (8)
  - ANAEMIA [None]
  - BONE MARROW FAILURE [None]
  - COUGH [None]
  - DRUG INEFFECTIVE [None]
  - HYPOALBUMINAEMIA [None]
  - PLEURAL EFFUSION [None]
  - PYREXIA [None]
  - THROMBOCYTOPENIA [None]
